FAERS Safety Report 9641798 (Version 5)
Quarter: 2021Q1

REPORT INFORMATION
  Report Type: Spontaneous
  Country: US (occurrence: US)
  Receive Date: 20131023
  Receipt Date: 20210312
  Transmission Date: 20210420
  Serious: Yes (Other)
  Sender: FDA-Public Use
  Company Number: US-SA-2013SA105273

PATIENT
  Age: 26 Year
  Sex: Female
  Weight: 51.25 kg

DRUGS (11)
  1. LUMIZYME [Suspect]
     Active Substance: ALGLUCOSIDASE ALFA
     Dosage: 1100 MG, QOW
     Route: 042
     Dates: start: 20121011
  2. ACETAMINOPHEN. [Concomitant]
     Active Substance: ACETAMINOPHEN
  3. STERILE WATER [Concomitant]
     Active Substance: WATER
  4. TRETINOIN. [Concomitant]
     Active Substance: TRETINOIN
  5. LUMIZYME [Suspect]
     Active Substance: ALGLUCOSIDASE ALFA
     Indication: GLYCOGEN STORAGE DISORDER
     Dosage: UNK
     Route: 042
     Dates: start: 20130826
  6. NORMAL SALINE [Concomitant]
     Active Substance: SODIUM CHLORIDE
  7. DOXYCYCLINE HYCLATE. [Concomitant]
     Active Substance: DOXYCYCLINE HYCLATE
  8. LAMOTRIGINE. [Concomitant]
     Active Substance: LAMOTRIGINE
  9. EPINEPHRINE. [Concomitant]
     Active Substance: EPINEPHRINE
     Dosage: UNK
  10. KEPPRA [Concomitant]
     Active Substance: LEVETIRACETAM
  11. SODIUM CHLORIDE. [Concomitant]
     Active Substance: SODIUM CHLORIDE

REACTIONS (4)
  - Fall [Unknown]
  - Head discomfort [Unknown]
  - Ear discomfort [Unknown]
  - Seizure [Unknown]

NARRATIVE: CASE EVENT DATE: 201310
